FAERS Safety Report 5945545-8 (Version None)
Quarter: 2008Q4

REPORT INFORMATION
  Report Type: 
  Country: None (occurrence: None)
  Receive Date: 20081107
  Receipt Date: 20081030
  Transmission Date: 20090506
  Serious: Yes (Hospitalization, Other)
  Sender: FDA-Public Use
  Company Number: US-ROXANE LABORATORIES, INC.-2008-RO-00183RO

PATIENT
  Age: 70 Year
  Sex: Female

DRUGS (8)
  1. CYCLOPHOSPHAMIDE [Suspect]
     Indication: WEGENER'S GRANULOMATOSIS
  2. CYCLOPHOSPHAMIDE [Suspect]
     Indication: IMMUNOSUPPRESSION
     Dosage: 125MG
  3. PREDNISONE TAB [Suspect]
     Indication: IMMUNOSUPPRESSION
     Dosage: 60MG
  4. METHOTREXATE [Suspect]
     Indication: WEGENER'S GRANULOMATOSIS
  5. GLUCOCORTICOIDS [Suspect]
     Indication: WEGENER'S GRANULOMATOSIS
  6. ATOVAQUONE [Suspect]
     Indication: ANTIFUNGAL PROPHYLAXIS
  7. CLINDAMYCIN HCL [Concomitant]
     Indication: PNEUMOCYSTIS JIROVECI INFECTION
     Dosage: 1800MG
  8. PRIMAQUINE [Concomitant]
     Indication: PNEUMOCYSTIS JIROVECI INFECTION

REACTIONS (5)
  - NAUSEA [None]
  - PACHYMENINGITIS [None]
  - PNEUMOCYSTIS JIROVECI PNEUMONIA [None]
  - TREATMENT NONCOMPLIANCE [None]
  - VOMITING [None]
